FAERS Safety Report 10041166 (Version 5)
Quarter: 2017Q2

REPORT INFORMATION
  Report Type: Report from Study
  Country: AU (occurrence: AU)
  Receive Date: 20140327
  Receipt Date: 20170524
  Transmission Date: 20170829
  Serious: Yes (Hospitalization)
  Sender: FDA-Public Use
  Company Number: AU-009507513-1302AUS002596

PATIENT
  Age: 73 Year
  Sex: Female
  Weight: 66 kg

DRUGS (13)
  1. ATORVASTATIN [Concomitant]
     Active Substance: ATORVASTATIN
     Indication: HYPOLIPIDAEMIA
     Dosage: 60 MG, QD
     Route: 048
     Dates: start: 201110
  2. OMEPRAZOLE. [Concomitant]
     Active Substance: OMEPRAZOLE
     Indication: PROPHYLAXIS AGAINST GASTROINTESTINAL ULCER
     Dosage: 40 MG, QD
     Route: 048
     Dates: start: 20110421
  3. PLACEBO [Suspect]
     Active Substance: UNSPECIFIED INGREDIENT
     Route: 058
     Dates: start: 20120327, end: 20120327
  4. PLACEBO [Suspect]
     Active Substance: UNSPECIFIED INGREDIENT
     Route: 058
     Dates: start: 20120419, end: 20120419
  5. LENALIDOMIDE [Suspect]
     Active Substance: LENALIDOMIDE
     Indication: WOUND DEHISCENCE
     Dosage: 10 MG, QD
     Route: 048
     Dates: start: 20120801, end: 20130123
  6. PLACEBO [Suspect]
     Active Substance: UNSPECIFIED INGREDIENT
     Indication: PROPHYLAXIS
     Route: 058
     Dates: start: 20120216, end: 20120216
  7. PLACEBO [Suspect]
     Active Substance: UNSPECIFIED INGREDIENT
     Route: 058
     Dates: start: 20120517, end: 20120517
  8. CARVEDILOL. [Concomitant]
     Active Substance: CARVEDILOL
     Indication: HYPERTENSION
     Dosage: 3.13 MG, BID
     Route: 048
     Dates: start: 201111
  9. METOCLOPRAMIDE. [Concomitant]
     Active Substance: METOCLOPRAMIDE
     Indication: NAUSEA
     Dosage: TOTAL DAILY DOSE 30 MG, PRN
     Route: 048
     Dates: start: 20111101
  10. ACETAMINOPHEN. [Concomitant]
     Active Substance: ACETAMINOPHEN
     Indication: PAIN MANAGEMENT
     Dosage: TOTAL DAILY DOSE 4000 MG, PRN
     Route: 048
     Dates: start: 20111101
  11. ASPIRIN. [Concomitant]
     Active Substance: ASPIRIN
     Indication: PLATELET AGGREGATION INHIBITION
     Dosage: 100 MG, QD
     Route: 048
     Dates: start: 201111
  12. DEXAMETHASONE. [Suspect]
     Active Substance: DEXAMETHASONE
     Indication: WOUND DEHISCENCE
     Dosage: 20 MG, QW
     Route: 048
     Dates: start: 20120801, end: 20130124
  13. COLOXYL WITH SENNA [Concomitant]
     Active Substance: DOCUSATE\SENNOSIDES
     Indication: CONSTIPATION PROPHYLAXIS
     Dosage: TOTAL DAILY DOSE 4 TABLETS, PRN
     Route: 048
     Dates: start: 20111124

REACTIONS (1)
  - Wound dehiscence [Recovered/Resolved with Sequelae]

NARRATIVE: CASE EVENT DATE: 20120904
